FAERS Safety Report 9758053 (Version 1)
Quarter: 2013Q4

REPORT INFORMATION
  Report Type: Spontaneous
  Country: IT (occurrence: IT)
  Receive Date: 20131216
  Receipt Date: 20131216
  Transmission Date: 20140711
  Serious: Yes (Other)
  Sender: FDA-Public Use
  Company Number: IT-JNJFOC-20131204045

PATIENT
  Age: 61 Year
  Sex: Female

DRUGS (4)
  1. HALDOL DECANOAS [Suspect]
     Indication: SCHIZOPHRENIA
     Route: 030
     Dates: start: 20131115, end: 20131115
  2. HALDOL [Suspect]
     Indication: SCHIZOPHRENIA
     Route: 048
     Dates: start: 20131118, end: 20131120
  3. HALDOL [Suspect]
     Indication: SCHIZOPHRENIA
     Route: 048
     Dates: start: 20131030, end: 20131118
  4. EN [Concomitant]
     Indication: PRODUCT USED FOR UNKNOWN INDICATION
     Route: 048
     Dates: start: 20131030, end: 20131202

REACTIONS (4)
  - Parkinsonian gait [Recovering/Resolving]
  - Extrapyramidal disorder [Recovering/Resolving]
  - Movement disorder [Recovering/Resolving]
  - Camptocormia [Recovering/Resolving]
